FAERS Safety Report 4982410-7 (Version None)
Quarter: 2006Q2

REPORT INFORMATION
  Report Type: 
  Country: None (occurrence: None)
  Receive Date: 20060419
  Receipt Date: 20060404
  Transmission Date: 20061013
  Serious: Yes (Hospitalization, Other)
  Sender: FDA-Public Use
  Company Number: 2006BI002611

PATIENT
  Sex: Male
  Weight: 64.4108 kg

DRUGS (14)
  1. AVONEX [Suspect]
     Indication: MULTIPLE SCLEROSIS
     Dosage: 30 UG, QW, IM
     Route: 030
     Dates: start: 19990101, end: 20040101
  2. AVONEX [Suspect]
     Indication: MULTIPLE SCLEROSIS
     Dosage: 30 UG, QW, IM
     Route: 030
     Dates: start: 20040101
  3. LOPRESSOR [Concomitant]
  4. BACLOFEN [Concomitant]
  5. FLOMAX [Concomitant]
  6. VALIUM [Concomitant]
  7. DETROL [Concomitant]
  8. ASPIRIN [Concomitant]
  9. NAMENDA [Concomitant]
  10. PREDNISONE TAB [Concomitant]
  11. FOSAMAX [Concomitant]
  12. LIPITOR [Concomitant]
  13. LEXAPRO [Concomitant]
  14. FAMPRIDINE [Concomitant]

REACTIONS (32)
  - ASTHENIA [None]
  - BALANCE DISORDER [None]
  - BLOOD URINE PRESENT [None]
  - BODY TEMPERATURE DECREASED [None]
  - CHEST PAIN [None]
  - CHILLS [None]
  - CHRONIC OBSTRUCTIVE PULMONARY DISEASE [None]
  - COLITIS ISCHAEMIC [None]
  - CONDITION AGGRAVATED [None]
  - CONFUSIONAL STATE [None]
  - DIALYSIS [None]
  - ECCHYMOSIS [None]
  - ELECTROCARDIOGRAM T WAVE BIPHASIC [None]
  - ELECTROCARDIOGRAM T WAVE INVERSION [None]
  - ENTEROCOLITIS INFECTIOUS [None]
  - FALL [None]
  - GASTRIC LAVAGE ABNORMAL [None]
  - GASTROINTESTINAL HAEMORRHAGE [None]
  - HAEMATOCRIT DECREASED [None]
  - HYPERTENSION [None]
  - HYPOTENSION [None]
  - HYPOXIA [None]
  - NECK PAIN [None]
  - ORTHOSTATIC HYPOTENSION [None]
  - OVERDOSE [None]
  - PLATELET COUNT DECREASED [None]
  - PNEUMONIA [None]
  - RENAL FAILURE [None]
  - RESPIRATORY RATE INCREASED [None]
  - SHOCK [None]
  - SPUTUM DISCOLOURED [None]
  - SYNCOPE [None]
